FAERS Safety Report 25478890 (Version 2)
Quarter: 2025Q2

REPORT INFORMATION
  Report Type: Report from Study
  Country: US (occurrence: US)
  Receive Date: 20250625
  Receipt Date: 20250629
  Transmission Date: 20250717
  Serious: Yes (Hospitalization, Other)
  Sender: ABBVIE
  Company Number: US-ABBVIE-6335722

PATIENT
  Age: 69 Year
  Sex: Male

DRUGS (1)
  1. HUMIRA [Suspect]
     Active Substance: ADALIMUMAB
     Indication: Ankylosing spondylitis
     Route: 058
     Dates: start: 20190911

REACTIONS (4)
  - Renal cancer stage I [Unknown]
  - Benign renal neoplasm [Unknown]
  - Renal neoplasm [Unknown]
  - Renal haemorrhage [Unknown]

NARRATIVE: CASE EVENT DATE: 20241201
